FAERS Safety Report 8776134 (Version 2)
Quarter: 2012Q4

REPORT INFORMATION
  Report Type: Report from Study
  Country: CA (occurrence: CA)
  Receive Date: 20120910
  Receipt Date: 20120924
  Transmission Date: 20130627
  Serious: Yes (Other)
  Sender: FDA-Public Use
  Company Number: CA-ABBOTT-12P-028-0972750-00

PATIENT
  Sex: Female
  Weight: 63.56 kg

DRUGS (7)
  1. HUMIRA 40 MG/0.8 ML PEN [Suspect]
     Indication: RHEUMATOID ARTHRITIS
     Route: 058
     Dates: start: 20100507
  2. METHOTREXATE [Concomitant]
     Indication: RHEUMATOID ARTHRITIS
     Route: 048
     Dates: start: 2000
  3. SULFASALAZINE [Concomitant]
     Indication: RHEUMATOID ARTHRITIS
     Route: 048
     Dates: start: 2004
  4. FOLIC ACID [Concomitant]
     Indication: PRODUCT USED FOR UNKNOWN INDICATION
     Route: 048
     Dates: start: 2000
  5. LOSARTAN/HCTZ [Concomitant]
     Indication: HYPERTENSION
     Dosage: 50mg/12.5 mg
     Route: 048
     Dates: start: 2007
  6. PROMETRIUM [Concomitant]
     Indication: HORMONE REPLACEMENT THERAPY
     Dates: start: 2006
  7. ESTROGEL [Concomitant]
     Indication: HORMONE REPLACEMENT THERAPY
     Route: 061
     Dates: start: 2006

REACTIONS (3)
  - Rheumatoid arthritis [Unknown]
  - Arthritis [Not Recovered/Not Resolved]
  - Motor dysfunction [Not Recovered/Not Resolved]
